FAERS Safety Report 4266078-3 (Version None)
Quarter: 2004Q1

REPORT INFORMATION
  Report Type: 
  Country: None (occurrence: None)
  Receive Date: 20040106
  Receipt Date: 20031222
  Transmission Date: 20041129
  Serious: Yes (Hospitalization)
  Sender: FDA-Public Use
  Company Number: 2003-06492

PATIENT
  Age: 43 Year
  Sex: Male
  Weight: 70 kg

DRUGS (4)
  1. VIREAD [Suspect]
     Indication: HIV INFECTION
     Dosage: 300 MG QD PO
     Route: 048
     Dates: start: 20031024, end: 20031102
  2. VIDEX [Suspect]
     Indication: HIV INFECTION
     Dosage: 250 MG QD PO
     Route: 048
     Dates: start: 20031024, end: 20031102
  3. SUSTIVA [Suspect]
     Indication: HIV INFECTION
     Dosage: 600 MG QD PO
     Route: 048
     Dates: start: 20031024, end: 20031102
  4. VOLTAREN [Suspect]
     Dates: start: 20031024, end: 20031102

REACTIONS (3)
  - CHOLESTASIS [None]
  - HYPERKALAEMIA [None]
  - RENAL FAILURE [None]
